FAERS Safety Report 5566788-1 (Version None)
Quarter: 2007Q4

REPORT INFORMATION
  Report Type: 
  Country: None (occurrence: None)
  Receive Date: 20071219
  Receipt Date: 20071218
  Transmission Date: 20080405
  Serious: Yes (Death, Life-Threatening, Other)
  Sender: FDA-Public Use
  Company Number: A0699545A

PATIENT
  Age: 48 Year
  Sex: Male

DRUGS (4)
  1. ADVAIR DISKUS 100/50 [Suspect]
     Indication: ASTHMA
     Dosage: 1PUFF TWICE PER DAY
     Route: 055
     Dates: start: 20070501, end: 20070701
  2. ADVAIR DISKUS 100/50 [Suspect]
     Dosage: 1SPR TWICE PER DAY
     Route: 055
     Dates: start: 20070701, end: 20070901
  3. SPIRIVA [Concomitant]
  4. SINGULAIR [Concomitant]

REACTIONS (2)
  - DYSPHONIA [None]
  - DYSPNOEA [None]
